FAERS Safety Report 18660741 (Version 1)
Quarter: 2020Q4

REPORT INFORMATION
  Report Type: Spontaneous
  Country: BR (occurrence: BR)
  Receive Date: 20201224
  Receipt Date: 20201224
  Transmission Date: 20210114
  Serious: Yes (Other)
  Sender: FDA-Public Use
  Company Number: NVSC2020BR339523

PATIENT
  Age: 72 Year
  Sex: Female

DRUGS (1)
  1. ACLASTA [Suspect]
     Active Substance: ZOLEDRONIC ACID
     Indication: OSTEOPOROSIS
     Dosage: UNK
     Route: 065
     Dates: end: 2012

REACTIONS (5)
  - Spinal fracture [Unknown]
  - Fall [Unknown]
  - Foot fracture [Unknown]
  - Bone decalcification [Unknown]
  - Kyphosis [Unknown]

NARRATIVE: CASE EVENT DATE: 2020
